FAERS Safety Report 4734032-0 (Version None)
Quarter: 2005Q3

REPORT INFORMATION
  Report Type: 
  Country: None (occurrence: None)
  Receive Date: 20050721
  Receipt Date: 20050509
  Transmission Date: 20060218
  Serious: No
  Sender: FDA-Public Use
  Company Number: 2005SP000633

PATIENT
  Age: 56 Year
  Sex: Female

DRUGS (7)
  1. LUNESTA [Suspect]
     Dosage: 3 MG;HS;ORAL
     Route: 048
     Dates: start: 20050504
  2. DEPAKOTE [Concomitant]
  3. TRAZODONE [Concomitant]
  4. REMERON [Concomitant]
  5. EFFEXOR [Concomitant]
  6. AMBIEN [Concomitant]
  7. SONATA [Concomitant]

REACTIONS (2)
  - DRUG INEFFECTIVE [None]
  - MIDDLE INSOMNIA [None]
